FAERS Safety Report 17543790 (Version 1)
Quarter: 2020Q1

REPORT INFORMATION
  Report Type: Spontaneous
  Country: GB (occurrence: GB)
  Receive Date: 20200316
  Receipt Date: 20200316
  Transmission Date: 20200409
  Serious: Yes (Other)
  Sender: FDA-Public Use
  Company Number: GB-AUROBINDO-AUR-APL-2020-012462

PATIENT
  Age: 34 Year
  Sex: Female

DRUGS (4)
  1. LACOSAMIDE. [Suspect]
     Active Substance: LACOSAMIDE
     Dosage: 150 MILLIGRAM, TWO TIMES A DAY (300 MILLIGRAM, ONCE A DAY)
     Route: 048
     Dates: start: 20191212
  2. LAMOTRIGINE. [Suspect]
     Active Substance: LAMOTRIGINE
     Indication: PRODUCT USED FOR UNKNOWN INDICATION
     Dosage: UNK (SLOWLY TAKEN OFF)
     Route: 065
     Dates: start: 2019
  3. BRIVARACETAM [Suspect]
     Active Substance: BRIVARACETAM
     Indication: EPILEPSY
     Dosage: 75 MILLIGRAM, TWO TIMES A DAY (150 MILLIGRAM, ONCE A DAY)
     Route: 048
     Dates: start: 20180726
  4. LACOSAMIDE. [Suspect]
     Active Substance: LACOSAMIDE
     Indication: EPILEPSY
     Dosage: 100 MILLIGRAM, TWO TIMES A DAY (200 MILLIGRAM ONCE A DAY)
     Route: 048
     Dates: start: 201912

REACTIONS (7)
  - Decreased appetite [Recovered/Resolved]
  - Adverse drug reaction [Unknown]
  - Seizure [Recovering/Resolving]
  - Weight decreased [Recovered/Resolved]
  - Libido decreased [Not Recovered/Not Resolved]
  - Sleep disorder [Not Recovered/Not Resolved]
  - Fatigue [Not Recovered/Not Resolved]

NARRATIVE: CASE EVENT DATE: 2019
